FAERS Safety Report 10483350 (Version 1)
Quarter: 2014Q3

REPORT INFORMATION
  Report Type: Spontaneous
  Country: US (occurrence: None)
  Receive Date: 20140908
  Receipt Date: 20140908
  Transmission Date: 20150326
  Serious: Yes (Other)
  Sender: FDA-Public Use
  Company Number: 394754

PATIENT
  Age: 56 Year
  Sex: Male
  Weight: 128.8 kg

DRUGS (7)
  1. TESTOSTERONE  (TESTOSTERONE) [Concomitant]
  2. VICTOZA [Suspect]
     Active Substance: LIRAGLUTIDE
     Indication: TYPE 2 DIABETES MELLITUS
     Route: 058
     Dates: start: 201208, end: 201312
  3. LSISINOPRI (LISINOPRIL) [Concomitant]
  4. METFORMIN [Concomitant]
     Active Substance: METFORMIN HYDROCHLORIDE
  5. LIPITOR [Concomitant]
     Active Substance: ATORVASTATIN CALCIUM
  6. NIASPAN (NICOTINIC ACID) [Concomitant]
  7. LANTUS INSULIN GLARGINE) [Concomitant]

REACTIONS (1)
  - Papillary thyroid cancer [None]

NARRATIVE: CASE EVENT DATE: 201311
